FAERS Safety Report 7397858-3 (Version None)
Quarter: 2011Q2

REPORT INFORMATION
  Report Type: 
  Country: None (occurrence: None)
  Receive Date: 20110406
  Receipt Date: 20110404
  Transmission Date: 20111010
  Serious: Yes (Life-Threatening, Hospitalization)
  Sender: FDA-Public Use
  Company Number: FR-PFIZER INC-2011006664

PATIENT
  Age: 28 Year
  Sex: Female
  Weight: 45 kg

DRUGS (12)
  1. PARA AMINOSALICYLIC ACID [Concomitant]
     Indication: TUBERCULOSIS
     Dosage: UNK
  2. VIREAD [Concomitant]
     Indication: ANTIRETROVIRAL THERAPY
     Dosage: UNK
  3. CORTANCYL [Concomitant]
     Dosage: UNK
  4. URBANYL [Suspect]
     Dosage: UNK
     Route: 048
     Dates: start: 20101021, end: 20101117
  5. KALETRA [Concomitant]
     Indication: ANTIRETROVIRAL THERAPY
     Dosage: UNK
  6. KEPPRA [Suspect]
     Dosage: UNK
     Route: 048
     Dates: start: 20101029, end: 20101124
  7. FLAGYL [Suspect]
     Dosage: UNK
     Route: 048
     Dates: start: 20101110, end: 20101116
  8. CYCLOSERINE [Concomitant]
     Indication: TUBERCULOSIS
     Dosage: UNK
  9. ETHAMBUTOL [Concomitant]
     Indication: TUBERCULOSIS
     Dosage: UNK
  10. VFEND [Suspect]
     Dosage: UNK
     Dates: start: 20101018, end: 20101115
  11. MOXIFLOXACIN [Concomitant]
     Indication: TUBERCULOSIS
     Dosage: UNK
  12. ZIAGEN [Concomitant]
     Indication: ANTIRETROVIRAL THERAPY
     Dosage: UNK

REACTIONS (3)
  - TOXIC EPIDERMAL NECROLYSIS [None]
  - OEDEMA [None]
  - EOSINOPHILIA [None]
